FAERS Safety Report 9108263 (Version 1)
Quarter: 2013Q1

REPORT INFORMATION
  Report Type: Spontaneous
  Country: AT (occurrence: AT)
  Receive Date: 20130222
  Receipt Date: 20130222
  Transmission Date: 20140127
  Serious: Yes (Hospitalization)
  Sender: FDA-Public Use
  Company Number: AT-PFIZER INC-2013063181

PATIENT
  Age: 58 Year
  Sex: Male
  Weight: 89 kg

DRUGS (6)
  1. DALACIN [Suspect]
     Indication: FACE INJURY
     Dosage: 600 MG, 3X/DAY
     Route: 048
     Dates: start: 20120517, end: 20120522
  2. SERACTIL [Concomitant]
     Dosage: 300 MG, 3X/DAY
     Route: 048
  3. OTRIVIN [Concomitant]
     Dosage: UNK
     Route: 045
  4. REFOBACIN [Concomitant]
     Dosage: 5 TIMES PER DAY
     Route: 047
  5. PANTOPRAZOLE SODIUM [Concomitant]
     Dosage: 40 MG, 1X/DAY
  6. OLEOVIT [Concomitant]
     Dosage: 2 - 3 TIMES PER DAY
     Route: 047

REACTIONS (2)
  - Erythema multiforme [Recovered/Resolved]
  - Pyrexia [Recovered/Resolved]
